FAERS Safety Report 25426260 (Version 1)
Quarter: 2025Q2

REPORT INFORMATION
  Report Type: Report from Study
  Country: JP (occurrence: JP)
  Receive Date: 20250612
  Receipt Date: 20250612
  Transmission Date: 20250717
  Serious: Yes (Hospitalization, Other)
  Sender: TAKEDA
  Company Number: JP-TAKEDA-2024TJP009465

PATIENT
  Age: 56 Year
  Sex: Female

DRUGS (30)
  1. TEDUGLUTIDE [Suspect]
     Active Substance: TEDUGLUTIDE
     Indication: Short-bowel syndrome
  2. TEDUGLUTIDE [Suspect]
     Active Substance: TEDUGLUTIDE
  3. TEDUGLUTIDE [Suspect]
     Active Substance: TEDUGLUTIDE
  4. TEDUGLUTIDE [Suspect]
     Active Substance: TEDUGLUTIDE
  5. ENTYVIO [Suspect]
     Active Substance: VEDOLIZUMAB
     Indication: Short-bowel syndrome
  6. OMEGA-3-ACID ETHYL ESTERS [Concomitant]
     Active Substance: OMEGA-3-ACID ETHYL ESTERS
  7. AMINO ACIDS\DEXTROSE\ELECTROLYTES NOS\MINERALS\VITAMINS [Concomitant]
     Active Substance: AMINO ACIDS\DEXTROSE\ELECTROLYTES NOS\MINERALS\VITAMINS
     Indication: Short-bowel syndrome
  8. CALCIUM CHLORIDE\POTASSIUM CHLORIDE\SODIUM ACETATE\SODIUM CHLORIDE [Concomitant]
     Active Substance: CALCIUM CHLORIDE\POTASSIUM CHLORIDE\SODIUM ACETATE\SODIUM CHLORIDE
     Indication: Short-bowel syndrome
  9. SOLDEM 3A [Concomitant]
     Active Substance: CARBOHYDRATES\POTASSIUM CHLORIDE\SODIUM CHLORIDE\SODIUM LACTATE
     Indication: Short-bowel syndrome
  10. BIO-THREE [Concomitant]
     Active Substance: HERBALS
     Indication: Short-bowel syndrome
  11. LOPERAMIDE HYDROCHLORIDE [Concomitant]
     Active Substance: LOPERAMIDE HYDROCHLORIDE
     Indication: Short-bowel syndrome
  12. URSO [Concomitant]
     Active Substance: URSODIOL
  13. ALLOPURINOL [Concomitant]
     Active Substance: ALLOPURINOL
  14. GLUTAMINE\SODIUM GUALENATE [Concomitant]
     Active Substance: GLUTAMINE\SODIUM GUALENATE
  15. NEXIUM [Concomitant]
     Active Substance: ESOMEPRAZOLE MAGNESIUM
  16. Glycyron [Concomitant]
  17. ALLOID G [Concomitant]
     Active Substance: SODIUM ALGINATE
  18. MIRABEGRON [Concomitant]
     Active Substance: MIRABEGRON
  19. DESFERAL [Concomitant]
     Active Substance: DEFEROXAMINE MESYLATE
  20. CARBIMAZOLE [Concomitant]
     Active Substance: CARBIMAZOLE
  21. CATAPRES [Concomitant]
     Active Substance: CLONIDINE HYDROCHLORIDE
  22. AMLODIPINE [Concomitant]
     Active Substance: AMLODIPINE BESYLATE
  23. ALFACALCIDOL [Concomitant]
     Active Substance: ALFACALCIDOL
  24. MENATETRENONE [Concomitant]
     Active Substance: MENATETRENONE
  25. KETOPROFEN [Concomitant]
     Active Substance: KETOPROFEN
  26. AMINO ACIDS\DEXTROSE\ELECTROLYTES NOS\SOYBEAN OIL\VITAMINS [Concomitant]
     Active Substance: AMINO ACIDS\DEXTROSE\ELECTROLYTES NOS\SOYBEAN OIL\VITAMINS
     Indication: Short-bowel syndrome
  27. EPERISONE HYDROCHLORIDE [Concomitant]
     Active Substance: EPERISONE HYDROCHLORIDE
  28. CAMOSTAT MESYLATE [Concomitant]
     Active Substance: CAMOSTAT MESYLATE
  29. OPALMON [Concomitant]
     Active Substance: LIMAPROST
  30. CELECOXIB [Concomitant]
     Active Substance: CELECOXIB

REACTIONS (10)
  - Cholecystitis [Recovered/Resolved]
  - Puncture site erythema [Recovering/Resolving]
  - Puncture site pruritus [Recovering/Resolving]
  - Weight decreased [Not Recovered/Not Resolved]
  - Diarrhoea [Recovered/Resolved]
  - Sputum retention [Recovered/Resolved]
  - Temporomandibular pain and dysfunction syndrome [Recovered/Resolved]
  - Arthralgia [Recovered/Resolved]
  - Pain in extremity [Recovered/Resolved]
  - Nausea [Recovered/Resolved]

NARRATIVE: CASE EVENT DATE: 20211202
